FAERS Safety Report 25950136 (Version 4)
Quarter: 2025Q4

REPORT INFORMATION
  Report Type: Spontaneous
  Country: JP (occurrence: JP)
  Receive Date: 20251022
  Receipt Date: 20251224
  Transmission Date: 20260119
  Serious: Yes (Other)
  Sender: GENMAB
  Company Number: JP-GENMAB-2025-03203

PATIENT
  Age: 81 Year
  Sex: Male
  Weight: 59.9 kg

DRUGS (27)
  1. EPKINLY [Suspect]
     Active Substance: EPCORITAMAB-BYSP
     Indication: Follicular lymphoma
     Dosage: 0.16 MILLIGRAM, SINGLE
     Route: 058
     Dates: start: 20250820, end: 20250820
  2. EPKINLY [Suspect]
     Active Substance: EPCORITAMAB-BYSP
     Dosage: 48 MILLIGRAM
     Route: 058
     Dates: start: 2025, end: 20251008
  3. CORTICOTROPIN [Concomitant]
     Active Substance: CORTICOTROPIN
     Dosage: UNK, INTERNAL USE
     Route: 048
  4. PIOGLITAZONE HYDROCHLORIDE [Concomitant]
     Active Substance: PIOGLITAZONE HYDROCHLORIDE
     Dosage: 15 MILLIGRAM
  5. PIOGLITAZONE HYDROCHLORIDE [Concomitant]
     Active Substance: PIOGLITAZONE HYDROCHLORIDE
     Dosage: 15 MILLIGRAM, QD(1 TABLET PER DAY), AFTER BREAKFAST, 5 DAYS OF ADMINISTRATION
     Dates: start: 202509, end: 202509
  6. PIOGLITAZONE HYDROCHLORIDE [Concomitant]
     Active Substance: PIOGLITAZONE HYDROCHLORIDE
     Dosage: UNK
     Dates: start: 202509
  7. JARDIANCE [Concomitant]
     Active Substance: EMPAGLIFLOZIN
     Dosage: 10 MILLIGRAM
  8. JARDIANCE [Concomitant]
     Active Substance: EMPAGLIFLOZIN
     Dosage: 10 MILLIGRAM, QD(1 TABLET PER DAY), AFTER BREAKFAST, 5 DAYS OF ADMINISTRATION
     Dates: start: 202509, end: 202509
  9. JARDIANCE [Concomitant]
     Active Substance: EMPAGLIFLOZIN
     Dosage: UNK
     Dates: start: 202509
  10. VILDAGLIPTIN [Concomitant]
     Active Substance: VILDAGLIPTIN
     Dosage: 100 MILLIGRAM
  11. VILDAGLIPTIN [Concomitant]
     Active Substance: VILDAGLIPTIN
     Dosage: 50 MILLIGRAM, BID(2 TABLETS; 1 TABLET TWICE DAILY), AFTER BREAKFAST AND DINNER, 5 DAYS OF ADMINISTRA
     Dates: start: 202509, end: 202509
  12. METFORMIN HYDROCHLORIDE [Concomitant]
     Active Substance: METFORMIN HYDROCHLORIDE
     Dosage: 1000 MILLIGRAM
  13. METFORMIN HYDROCHLORIDE [Concomitant]
     Active Substance: METFORMIN HYDROCHLORIDE
     Dosage: 500 MILLIGRAM, BID(4 TABLETS; 2 TABLETS TWICE DAILY), AFTER BREAKFAST AND DINNER, 5 DAYS OF ADMINIST
     Dates: start: 202509, end: 202509
  14. NOVORAPID [Concomitant]
     Active Substance: INSULIN ASPART
     Dosage: UNK, BY SCALE
  15. PITAVASTATIN CALCIUM [Concomitant]
     Active Substance: PITAVASTATIN CALCIUM
     Dosage: 1 MILLIGRAM, QD(1 TABLET PER DAY), AFTER BREAKFAST, 5 DAYS OF ADMINISTRATION
     Dates: start: 202509, end: 202509
  16. PITAVASTATIN CALCIUM [Concomitant]
     Active Substance: PITAVASTATIN CALCIUM
     Dosage: UNK
     Dates: start: 202509
  17. THEOPHYLLINE [Concomitant]
     Active Substance: THEOPHYLLINE
     Dosage: 200 MILLIGRAM, QD(2 TABLETS PER DAY), BEFORE BED, 5 DAYS OF ADMINISTRATION
     Dates: start: 202509, end: 202509
  18. MONTELUKAST [Concomitant]
     Active Substance: MONTELUKAST
     Dosage: 10 MILLIGRAM, QD(1 TABLET PER DAY), BEFORE BED, 5 DAYS OF ADMINISTRATION
     Dates: start: 202509, end: 202509
  19. SULFAMETHOXAZOLE\TRIMETHOPRIM [Concomitant]
     Active Substance: SULFAMETHOXAZOLE\TRIMETHOPRIM
     Dosage: UNK, BID(2 TABLETS; 1 TABLET TWICE DAILY), AFTER BREAKFAST AND DINNER, INTERNAL USE ON TUESDAY AND S
     Route: 048
     Dates: start: 20250913, end: 20250916
  20. BIO-THREE [Concomitant]
     Active Substance: DIETARY SUPPLEMENT\PROBIOTICS NOS
     Dosage: UNK, TID(6 TABLETS; 2 TABLETS THREE TIMES DAILY), AFTER EACH MEAL, 5 DAYS OF ADMINISTRATION
     Dates: start: 202509, end: 202509
  21. VALACYCLOVIR HYDROCHLORIDE [Concomitant]
     Active Substance: VALACYCLOVIR HYDROCHLORIDE
     Dosage: 500 MILLIGRAM, QD(1 TABLET PER DAY), AFTER BREAKFAST, 5 DAYS OF ADMINISTRATION
     Dates: start: 202509, end: 202509
  22. VORICONAZOLE [Concomitant]
     Active Substance: VORICONAZOLE
     Dosage: 50 MILLIGRAM, QD(1 TABLET PER DAY), 2 HOURS AFTER BREAKFAST(DURING BREAKFAST), 5 DAYS OF ADMINISTRAT
     Dates: start: 202509, end: 202509
  23. AMITIZA [Concomitant]
     Active Substance: LUBIPROSTONE
     Dosage: 24 MICROGRAM, BID(2 CAPSULES; 1 CAPSULE TWICE DAILY), AFTER BREAKFAST AND DINNER, 5 DAYS OF ADMINIST
     Dates: start: 202509, end: 202509
  24. ASPIRIN [Concomitant]
     Active Substance: ASPIRIN
     Dosage: 100 MILLIGRAM, 1 TABLET
     Dates: start: 202509
  25. AMLODIPINE [Concomitant]
     Active Substance: AMLODIPINE BESYLATE
     Dosage: 2.5 MILLIGRAM, 1 TABLET
     Dates: start: 202509
  26. RABEPRAZOLE SODIUM [Concomitant]
     Active Substance: RABEPRAZOLE SODIUM
     Dosage: 10 MILLIGRAM, 1 TABLET
     Dates: start: 202509
  27. DECADRON [Concomitant]
     Active Substance: DEXAMETHASONE
     Dosage: UNK, QD(ONCE DAILY), AFTER BREAKFAST
     Dates: start: 20250925, end: 20250925

REACTIONS (2)
  - Hypothyroidism [Recovering/Resolving]
  - Muscular weakness [Not Recovered/Not Resolved]

NARRATIVE: CASE EVENT DATE: 20251008
